FAERS Safety Report 5179675-8 (Version None)
Quarter: 2006Q4

REPORT INFORMATION
  Report Type: 
  Country: None (occurrence: None)
  Receive Date: 20061211
  Receipt Date: 20061127
  Transmission Date: 20070319
  Serious: Yes (Hospitalization)
  Sender: FDA-Public Use
  Company Number: E2090-00139-SPO-US

PATIENT
  Age: 62 Year
  Sex: Female

DRUGS (2)
  1. ZONEGRAN [Suspect]
     Indication: CONVULSION
     Dosage: 100 MG, ORAL
     Route: 048
     Dates: start: 20060301
  2. PHENOBARBITAL TAB [Suspect]
     Dosage: 100 MG, 1 IN 1 D, ORAL
     Route: 048
     Dates: start: 20030101

REACTIONS (3)
  - DRUG INTERACTION [None]
  - DYSPNOEA [None]
  - TEMPORAL ARTERITIS [None]
